FAERS Safety Report 7935020-3 (Version None)
Quarter: 2011Q4

REPORT INFORMATION
  Report Type: 
  Country: None (occurrence: None)
  Receive Date: 20111117
  Receipt Date: 20111104
  Transmission Date: 20120403
  Serious: Yes (Hospitalization, Other)
  Sender: FDA-Public Use
  Company Number: 2011MA016056

PATIENT
  Sex: Male

DRUGS (7)
  1. METHADONE HYDROCHLORIDE [Concomitant]
  2. FLECAINIDE ACETATE [Concomitant]
  3. COUMADIN [Concomitant]
  4. DIGOXIN [Suspect]
     Indication: ATRIAL FIBRILLATION
     Dosage: 0.25 MG;QD;PO
     Route: 048
     Dates: start: 20010928, end: 20080601
  5. DIGOXIN [Suspect]
     Indication: ATRIAL FLUTTER
     Dosage: 0.25 MG;QD;PO
     Route: 048
     Dates: start: 20010928, end: 20080601
  6. FLOMAX [Concomitant]
  7. ASPIRIN [Concomitant]

REACTIONS (21)
  - PAIN IN EXTREMITY [None]
  - DYSPNOEA [None]
  - FATIGUE [None]
  - HEART RATE IRREGULAR [None]
  - NAUSEA [None]
  - DRUG INEFFECTIVE [None]
  - HEART RATE DECREASED [None]
  - PALPITATIONS [None]
  - ECONOMIC PROBLEM [None]
  - LOSS OF CONSCIOUSNESS [None]
  - ATRIAL FLUTTER [None]
  - AORTIC VALVE INCOMPETENCE [None]
  - CARDIAC ABLATION [None]
  - HEART INJURY [None]
  - PAIN [None]
  - DIZZINESS [None]
  - PULMONARY VALVE INCOMPETENCE [None]
  - UNEVALUABLE EVENT [None]
  - ANXIETY [None]
  - ARRHYTHMIA [None]
  - ATRIAL FIBRILLATION [None]
